FAERS Safety Report 4853093-1 (Version None)
Quarter: 2005Q4

REPORT INFORMATION
  Report Type: 
  Country: None (occurrence: None)
  Receive Date: 20051212
  Receipt Date: 20051129
  Transmission Date: 20060501
  Serious: Yes (Hospitalization)
  Sender: FDA-Public Use
  Company Number: HQWYE738029NOV05

PATIENT
  Age: 29 Year
  Sex: Female

DRUGS (7)
  1. INDERAL [Suspect]
     Dosage: 20 MG 1X PER 1 DAY, ORAL
     Route: 048
     Dates: start: 20050101
  2. CLONAZEPAM [Suspect]
     Dosage: 1.5 MG 1X PER 1 DAY, ORAL
     Route: 048
     Dates: start: 20051101, end: 20051107
  3. PHENOBARBITAL TAB [Concomitant]
  4. MUCOSTA (REBAMIPIDE) [Concomitant]
  5. MILNACIPRAN (MILNACIPRAN) [Concomitant]
  6. BAYASPIRINA (ACETYLSALICYLIC ACID) [Concomitant]
  7. MERCAZOLE (THIAMAZOLE) [Concomitant]

REACTIONS (2)
  - BLOOD ALKALINE PHOSPHATASE INCREASED [None]
  - GAMMA-GLUTAMYLTRANSFERASE INCREASED [None]
